FAERS Safety Report 8426513-3 (Version None)
Quarter: 2012Q2

REPORT INFORMATION
  Report Type: 
  Country: None (occurrence: None)
  Receive Date: 20120611
  Receipt Date: 20120531
  Transmission Date: 20120825
  Serious: Yes (Other)
  Sender: FDA-Public Use
  Company Number: JP-VERTEX PHARMACEUTICALS INC.-AE-2012-005830

PATIENT
  Age: 51 Year
  Sex: Male

DRUGS (14)
  1. PEG-INTRON [Concomitant]
     Route: 051
     Dates: start: 20120309, end: 20120309
  2. PEG-INTRON [Concomitant]
     Route: 051
     Dates: start: 20120330, end: 20120330
  3. TELAVIC (TELAPREVIR) [Suspect]
     Indication: HEPATITIS C
     Route: 048
     Dates: start: 20120302, end: 20120524
  4. URSO 250 [Concomitant]
     Route: 048
     Dates: end: 20120412
  5. OLMESARTAN MEDOXOMIL [Concomitant]
     Route: 048
  6. PEG-INTRON [Concomitant]
     Route: 051
     Dates: start: 20120406
  7. URSO 250 [Concomitant]
     Route: 048
     Dates: start: 20120413
  8. PROMACTA [Concomitant]
     Route: 048
  9. PEG-INTRON [Concomitant]
     Indication: HEPATITIS C
     Route: 051
     Dates: start: 20120302, end: 20120302
  10. EBASTEL OD [Concomitant]
     Route: 048
     Dates: end: 20120405
  11. PEG-INTRON [Concomitant]
     Route: 051
     Dates: start: 20120316, end: 20120323
  12. REBETOL [Concomitant]
     Indication: HEPATITIS C
     Route: 048
     Dates: start: 20120302
  13. ALLOPURINOL [Concomitant]
     Indication: HYPERURICAEMIA
     Route: 048
     Dates: start: 20120303, end: 20120412
  14. URSODIOL [Concomitant]
     Route: 048
     Dates: start: 20120413

REACTIONS (1)
  - NEUTROPHIL COUNT DECREASED [None]
